FAERS Safety Report 19224345 (Version 1)
Quarter: 2021Q2

REPORT INFORMATION
  Report Type: Spontaneous
  Country: US (occurrence: US)
  Receive Date: 20210506
  Receipt Date: 20210506
  Transmission Date: 20210717
  Serious: No
  Sender: FDA-Public Use
  Company Number: None

PATIENT
  Age: 4 Year
  Sex: Male

DRUGS (1)
  1. KIDS SPF 50PLUS SUNSCREEN CONTINUOUS [Suspect]
     Active Substance: OCTISALATE\ZINC OXIDE
     Indication: PROPHYLAXIS AGAINST SOLAR RADIATION
     Route: 061
     Dates: start: 20210428, end: 20210428

REACTIONS (2)
  - Sunburn [None]
  - Pain [None]

NARRATIVE: CASE EVENT DATE: 20210428
